FAERS Safety Report 20585458 (Version 1)
Quarter: 2022Q1

REPORT INFORMATION
  Report Type: Spontaneous
  Country: IT (occurrence: IT)
  Receive Date: 20220312
  Receipt Date: 20220312
  Transmission Date: 20220424
  Serious: Yes (Other)
  Sender: FDA-Public Use
  Company Number: IT-PBT-004395

PATIENT
  Age: 51 Year
  Sex: Male

DRUGS (5)
  1. TACROLIMUS [Suspect]
     Active Substance: TACROLIMUS
     Indication: Prophylaxis against transplant rejection
     Route: 065
  2. MYCOPHENOLATE MOFETIL [Suspect]
     Active Substance: MYCOPHENOLATE MOFETIL
     Indication: Prophylaxis against transplant rejection
     Route: 065
  3. PREDNISONE [Suspect]
     Active Substance: PREDNISONE
     Indication: Prophylaxis against transplant rejection
     Route: 042
  4. PREDNISONE [Suspect]
     Active Substance: PREDNISONE
     Indication: Prophylaxis against transplant rejection
     Dosage: 5MG TAPERING EVERY 2 WEEKS,
     Route: 042
  5. PREDNISONE [Suspect]
     Active Substance: PREDNISONE
     Indication: Transplant rejection
     Dosage: TAPERED BY 5 MG EVERY 2 WEEKS,
     Route: 042

REACTIONS (6)
  - Transplant rejection [Unknown]
  - Renal impairment [Unknown]
  - Coronary artery disease [Unknown]
  - Nystagmus [Unknown]
  - Hypomagnesaemia [Recovered/Resolved]
  - Deafness neurosensory [Unknown]

NARRATIVE: CASE EVENT DATE: 20200101
